FAERS Safety Report 7418394-1 (Version None)
Quarter: 2011Q2

REPORT INFORMATION
  Report Type: 
  Country: None (occurrence: None)
  Receive Date: 20110415
  Receipt Date: 20110408
  Transmission Date: 20111010
  Serious: Yes (Other)
  Sender: FDA-Public Use
  Company Number: US-BRISTOL-MYERS SQUIBB COMPANY-15671217

PATIENT
  Age: 40 Year
  Sex: Male

DRUGS (3)
  1. TRUVADA [Suspect]
  2. ATAZANAVIR [Suspect]
  3. RITONAVIR [Suspect]

REACTIONS (3)
  - BLINDNESS [None]
  - BLOOD BILIRUBIN INCREASED [None]
  - RETINAL PIGMENT EPITHELIOPATHY [None]
